FAERS Safety Report 20098505 (Version 1)
Quarter: 2021Q4

REPORT INFORMATION
  Report Type: Spontaneous
  Country: ES (occurrence: ES)
  Receive Date: 20211122
  Receipt Date: 20211122
  Transmission Date: 20220303
  Serious: Yes (Other)
  Sender: FDA-Public Use
  Company Number: ES-CMP PHARMA-2021CMP00034

PATIENT
  Age: 74 Year
  Sex: Female

DRUGS (3)
  1. TRIAMCINOLONE ACETONIDE [Suspect]
     Active Substance: TRIAMCINOLONE ACETONIDE
     Route: 061
  2. LIDOCAINE [Concomitant]
     Active Substance: LIDOCAINE
     Route: 061
  3. PENTOSAN POLYSULFATE SODIUM [Concomitant]
     Active Substance: PENTOSAN POLYSULFATE SODIUM
     Route: 061

REACTIONS (1)
  - Anal ulcer [Recovered/Resolved]
